FAERS Safety Report 10030213 (Version 1)
Quarter: 2014Q1

REPORT INFORMATION
  Report Type: Spontaneous
  Country: US (occurrence: US)
  Receive Date: 20140323
  Receipt Date: 20140323
  Transmission Date: 20141002
  Serious: No
  Sender: FDA-Public Use
  Company Number: US-ALLERGAN-1308585US

PATIENT
  Sex: Female

DRUGS (2)
  1. LATISSE 0.03% [Suspect]
     Indication: GROWTH OF EYELASHES
     Dosage: UNK, SINGLE
     Route: 061
     Dates: start: 20130606, end: 20130606
  2. LATISSE 0.03% [Suspect]
     Dosage: UNK UNK, QHS
     Route: 061

REACTIONS (6)
  - Blepharal pigmentation [Unknown]
  - Wrong technique in drug usage process [Unknown]
  - Wrong technique in drug usage process [Unknown]
  - Eye irritation [Unknown]
  - Eyelid oedema [Unknown]
  - Erythema of eyelid [Unknown]
